FAERS Safety Report 8262799-6 (Version None)
Quarter: 2012Q2

REPORT INFORMATION
  Report Type: 
  Country: None (occurrence: None)
  Receive Date: 20120405
  Receipt Date: 20120402
  Transmission Date: 20120825
  Serious: Yes (Hospitalization, Other)
  Sender: FDA-Public Use
  Company Number: US-ASTRAZENECA-2012SE21846

PATIENT
  Age: 58 Year
  Sex: Female
  Weight: 63.5 kg

DRUGS (29)
  1. SEROQUEL XR [Suspect]
     Indication: SCHIZOPHRENIA
     Route: 048
  2. SEROQUEL XR [Suspect]
     Route: 048
  3. SEROQUEL XR [Suspect]
     Route: 048
  4. SEROQUEL XR [Suspect]
     Route: 048
  5. SEROQUEL XR [Suspect]
     Route: 048
  6. SEROQUEL XR [Suspect]
     Route: 048
  7. XANAX [Suspect]
     Route: 065
  8. NARCOTICS [Concomitant]
     Indication: ANALGESIC THERAPY
  9. SEROQUEL XR [Suspect]
     Indication: ANXIETY DISORDER
     Route: 048
  10. SEROQUEL XR [Suspect]
     Route: 048
  11. SEROQUEL XR [Suspect]
     Route: 048
  12. SEROQUEL XR [Suspect]
     Route: 048
     Dates: start: 20100101
  13. SEROQUEL XR [Suspect]
     Route: 048
  14. SEROQUEL XR [Suspect]
     Route: 048
     Dates: start: 20100101
  15. SEROQUEL XR [Suspect]
     Route: 048
     Dates: start: 20100101
  16. PROZAC [Suspect]
     Route: 065
  17. SEROQUEL XR [Suspect]
     Route: 048
  18. SEROQUEL XR [Suspect]
     Route: 048
  19. SEROQUEL XR [Suspect]
     Route: 048
  20. SEROQUEL XR [Suspect]
     Route: 048
  21. SEROQUEL XR [Suspect]
     Route: 048
  22. SEROQUEL XR [Suspect]
     Route: 048
  23. SEROQUEL XR [Suspect]
     Indication: MENTAL DISORDER
     Route: 048
  24. SEROQUEL XR [Suspect]
     Route: 048
     Dates: start: 20100101
  25. SEROQUEL XR [Suspect]
     Route: 048
  26. SEROQUEL XR [Suspect]
     Route: 048
     Dates: start: 20100101
  27. SEROQUEL XR [Suspect]
     Route: 048
     Dates: start: 20100101
  28. ATIVAN [Suspect]
     Route: 065
  29. LASIX [Concomitant]

REACTIONS (18)
  - MENTAL DISORDER [None]
  - PANIC ATTACK [None]
  - HYPERVENTILATION [None]
  - DRUG WITHDRAWAL SYNDROME [None]
  - BRONCHITIS [None]
  - VISION BLURRED [None]
  - CONFUSIONAL STATE [None]
  - NERVOUSNESS [None]
  - MENTAL DISABILITY [None]
  - VISUAL IMPAIRMENT [None]
  - MENTAL IMPAIRMENT [None]
  - AFFECT LABILITY [None]
  - FATIGUE [None]
  - CONDITION AGGRAVATED [None]
  - ANXIETY DISORDER [None]
  - FEAR [None]
  - PERSONALITY DISORDER [None]
  - INTENTIONAL DRUG MISUSE [None]
